FAERS Safety Report 12555299 (Version 1)
Quarter: 2016Q3

REPORT INFORMATION
  Report Type: Spontaneous
  Country: DE (occurrence: DE)
  Receive Date: 20160714
  Receipt Date: 20160714
  Transmission Date: 20161109
  Serious: Yes (Other)
  Sender: FDA-Public Use
  Company Number: DE-JNJFOC-20160708925

PATIENT
  Sex: Male

DRUGS (2)
  1. XARELTO [Suspect]
     Active Substance: RIVAROXABAN
     Indication: RETINAL ARTERY OCCLUSION
     Route: 048
  2. XARELTO [Suspect]
     Active Substance: RIVAROXABAN
     Indication: STENOSIS
     Route: 048

REACTIONS (2)
  - Cerebrovascular accident [Unknown]
  - Ischaemia [Unknown]

NARRATIVE: CASE EVENT DATE: 20160621
